FAERS Safety Report 14291867 (Version 1)
Quarter: 2017Q4

REPORT INFORMATION
  Report Type: Spontaneous
  Country: US (occurrence: US)
  Receive Date: 20171215
  Receipt Date: 20171215
  Transmission Date: 20180321
  Serious: Yes (Hospitalization, Other)
  Sender: FDA-Public Use
  Company Number: US-NOVOPROD-558850

PATIENT
  Sex: Female
  Weight: 39 kg

DRUGS (1)
  1. LEVEMIR [Suspect]
     Active Substance: INSULIN DETEMIR
     Indication: TYPE 1 DIABETES MELLITUS
     Dosage: 15 U, QD (8 U IN THE MORNING AND 7 U AT NIGHT)
     Route: 058
     Dates: start: 20170715

REACTIONS (3)
  - Blood glucose increased [Recovering/Resolving]
  - Device failure [Unknown]
  - Drug dose omission [Unknown]

NARRATIVE: CASE EVENT DATE: 201708
